FAERS Safety Report 4831062-5 (Version None)
Quarter: 2005Q4

REPORT INFORMATION
  Report Type: 
  Country: None (occurrence: None)
  Receive Date: 20051114
  Receipt Date: 20051103
  Transmission Date: 20060501
  Serious: Yes (Other)
  Sender: FDA-Public Use
  Company Number: 2005151969

PATIENT
  Sex: Female

DRUGS (1)
  1. HEMABATE [Suspect]
     Indication: UTERINE ATONY
     Dosage: (ONCE), INTRAMUSCULAR
     Route: 030

REACTIONS (5)
  - AMNESIA [None]
  - ANAPHYLACTIC SHOCK [None]
  - ASTHMA [None]
  - HERPES ZOSTER [None]
  - ILL-DEFINED DISORDER [None]
